FAERS Safety Report 7482485-X (Version None)
Quarter: 2011Q2

REPORT INFORMATION
  Report Type: 
  Country: None (occurrence: None)
  Receive Date: 20110516
  Receipt Date: 20110505
  Transmission Date: 20111010
  Serious: Yes (Hospitalization, Other)
  Sender: FDA-Public Use
  Company Number: US-ASTRAZENECA-2011SE27154

PATIENT
  Age: 62 Year
  Sex: Male

DRUGS (1)
  1. TOPROL-XL [Suspect]
     Indication: CARDIAC FAILURE
     Route: 048
     Dates: end: 20101101

REACTIONS (9)
  - EYELID PTOSIS [None]
  - FEELING DRUNK [None]
  - BLINDNESS TRANSIENT [None]
  - MEMORY IMPAIRMENT [None]
  - EYELID OPERATION [None]
  - ABNORMAL BEHAVIOUR [None]
  - WEIGHT DECREASED [None]
  - SOMNOLENCE [None]
  - PERIPHERAL COLDNESS [None]
